FAERS Safety Report 14679810 (Version 1)
Quarter: 2018Q1

REPORT INFORMATION
  Report Type: Spontaneous
  Country: US (occurrence: US)
  Receive Date: 20180326
  Receipt Date: 20180326
  Transmission Date: 20180509
  Serious: Yes (Hospitalization)
  Sender: FDA-Public Use
  Company Number: US-LPDUSPRD-20180364

PATIENT
  Age: 62 Year
  Sex: Female

DRUGS (5)
  1. FLUOROURACIL. [Concomitant]
     Active Substance: FLUOROURACIL
     Dosage: UNKNOWN, CYCLE 3 OF 4
     Route: 042
  2. LOVENOX [Concomitant]
     Active Substance: ENOXAPARIN SODIUM
     Dosage: UNKNOWN
     Route: 065
  3. OXALIPLATIN INJECTION, USP (0517-1910-01) [Suspect]
     Active Substance: OXALIPLATIN
     Dosage: UNKNOWN, CYCLE 3 OF 4
     Route: 042
  4. IRINOTECAN [Concomitant]
     Active Substance: IRINOTECAN
     Dosage: UNKNOWN, CYCLE 3 OF 4
     Route: 042
  5. LEUCOVORIN CALCIUM INJECTION (0517-8605-25) [Concomitant]
     Active Substance: LEUCOVORIN CALCIUM
     Dosage: UNKNOWN,CYCLE 3 OF 4
     Route: 042

REACTIONS (3)
  - Nervous system disorder [Recovered/Resolved]
  - Neuromyotonia [Recovered/Resolved]
  - Off label use [Unknown]
